FAERS Safety Report 19914175 (Version 1)
Quarter: 2021Q4

REPORT INFORMATION
  Report Type: Spontaneous
  Country: US (occurrence: US)
  Receive Date: 20211005
  Receipt Date: 20211005
  Transmission Date: 20220304
  Serious: No
  Sender: FDA-Public Use
  Company Number: US-ACCORD-237735

PATIENT
  Sex: Female
  Weight: 68.04 kg

DRUGS (2)
  1. ESCITALOPRAM [Suspect]
     Active Substance: ESCITALOPRAM OXALATE
     Indication: Depression
     Dosage: 1 AND HALF DAILY
  2. RESTASIS [Concomitant]
     Active Substance: CYCLOSPORINE

REACTIONS (4)
  - Malaise [Unknown]
  - Abdominal discomfort [Unknown]
  - Constipation [Unknown]
  - Abdominal distension [Unknown]
